FAERS Safety Report 6407898-6 (Version None)
Quarter: 2009Q4

REPORT INFORMATION
  Report Type: 
  Country: None (occurrence: None)
  Receive Date: 20091016
  Receipt Date: 20091005
  Transmission Date: 20100525
  Serious: Yes (Death, Hospitalization, Other)
  Sender: FDA-Public Use
  Company Number: 2007-02330

PATIENT
  Age: 74 Year
  Sex: Male
  Weight: 46 kg

DRUGS (16)
  1. VELCADE [Suspect]
     Indication: MULTIPLE MYELOMA
     Dosage: 1.80 MG, INTRAVENOUS ; 1.40 MG, INTRAVENOUS ; 1.00 MG, INTRAVENOUS
     Route: 042
     Dates: start: 20070220, end: 20070302
  2. VELCADE [Suspect]
     Indication: MULTIPLE MYELOMA
     Dosage: 1.80 MG, INTRAVENOUS ; 1.40 MG, INTRAVENOUS ; 1.00 MG, INTRAVENOUS
     Route: 042
     Dates: start: 20070323, end: 20070529
  3. VELCADE [Suspect]
     Indication: MULTIPLE MYELOMA
     Dosage: 1.80 MG, INTRAVENOUS ; 1.40 MG, INTRAVENOUS ; 1.00 MG, INTRAVENOUS
     Route: 042
     Dates: start: 20070724, end: 20070828
  4. HYDROCORTISONE SODIUM SUCCINATE [Concomitant]
  5. NIFEDIPINE [Concomitant]
  6. PROTECADIN /JPN/ (LAFUTIDINE) [Concomitant]
  7. ALLOPURINOL [Concomitant]
  8. SODIUM BICARBONATE [Concomitant]
  9. SOLITA T (ELECTROLYTES NOS) [Concomitant]
  10. PRIMPERAN TAB [Concomitant]
  11. LASIX [Concomitant]
  12. NAUZELIN (DOMPERIDONE) [Concomitant]
  13. PURSENNID (SENNA LEAF) [Concomitant]
  14. DEXAMETHASONE TAB [Concomitant]
  15. ACYCLOVIR [Concomitant]
  16. AMIGRAND [Concomitant]

REACTIONS (10)
  - ALTERED STATE OF CONSCIOUSNESS [None]
  - DEHYDRATION [None]
  - DIARRHOEA [None]
  - DISEASE PROGRESSION [None]
  - EPILEPSY [None]
  - HYPOKALAEMIA [None]
  - MULTIPLE MYELOMA [None]
  - PNEUMONIA ASPIRATION [None]
  - RENAL FAILURE [None]
  - RENAL IMPAIRMENT [None]
